FAERS Safety Report 7804471-X (Version None)
Quarter: 2011Q4

REPORT INFORMATION
  Report Type: 
  Country: None (occurrence: None)
  Receive Date: 20111010
  Receipt Date: 20111004
  Transmission Date: 20120403
  Serious: Yes (Hospitalization)
  Sender: FDA-Public Use
  Company Number: CA-AMGEN-KDL392119

PATIENT
  Age: 55 Year
  Sex: Male
  Weight: 68 kg

DRUGS (15)
  1. MONOCOR [Concomitant]
  2. PANTOLOC                           /01263201/ [Concomitant]
  3. SENOKOT [Concomitant]
  4. ENBREL [Suspect]
     Dosage: 50 MG, QWK
     Dates: start: 20100607, end: 20100701
  5. OXYCONTIN [Concomitant]
     Dosage: 10 MG, UNK
  6. SUPEUDOL [Concomitant]
  7. ENBREL [Suspect]
     Dosage: 50 MG, QWK
     Dates: start: 20090917, end: 20100405
  8. ENBREL [Suspect]
     Indication: ANKYLOSING SPONDYLITIS
     Dosage: 50 MG, QWK
     Dates: start: 20090917, end: 20110301
  9. TYLENOL (CAPLET) [Concomitant]
     Dosage: 325 MG, UNK
  10. RABEPRAZOLE SODIUM [Concomitant]
  11. VITAMIN D [Concomitant]
  12. TYLENOL (CAPLET) [Concomitant]
     Dosage: 650 MG, UNK
  13. LIORESAL [Concomitant]
  14. CALCIUM CARBONATE [Concomitant]
     Dosage: 500 MG, UNK
  15. COLACE [Concomitant]

REACTIONS (12)
  - DEVICE FAILURE [None]
  - DEVICE RELATED INFECTION [None]
  - INCONTINENCE [None]
  - HIP ARTHROPLASTY [None]
  - HOSPITALISATION [None]
  - FLATULENCE [None]
  - GENERAL PHYSICAL HEALTH DETERIORATION [None]
  - SINUSITIS [None]
  - BRONCHITIS [None]
  - IMPAIRED HEALING [None]
  - GASTROINTESTINAL DISORDER [None]
  - ABDOMINAL DISTENSION [None]
